FAERS Safety Report 18516988 (Version 1)
Quarter: 2020Q4

REPORT INFORMATION
  Report Type: Spontaneous
  Country: JP (occurrence: JP)
  Receive Date: 20201118
  Receipt Date: 20201118
  Transmission Date: 20210114
  Serious: Yes (Hospitalization, Other)
  Sender: FDA-Public Use
  Company Number: NVSJ2020JP003759

PATIENT
  Age: 64 Year
  Sex: Female
  Weight: 53.5 kg

DRUGS (2)
  1. AROMASIN [Concomitant]
     Active Substance: EXEMESTANE
     Indication: BREAST CANCER RECURRENT
     Dosage: 25 MG, QD
     Route: 048
     Dates: start: 20191017, end: 20200406
  2. AFINITOR [Suspect]
     Active Substance: EVEROLIMUS
     Indication: BREAST CANCER RECURRENT
     Dosage: 5 MG, QD
     Route: 048
     Dates: start: 20191017, end: 20200304

REACTIONS (8)
  - Malaise [Recovering/Resolving]
  - Radiation pneumonitis [Recovering/Resolving]
  - Stomatitis [Recovered/Resolved]
  - Stomatitis [Recovered/Resolved]
  - Muscle spasms [Recovered/Resolved]
  - Pneumonia [Recovered/Resolved]
  - Cough [Recovering/Resolving]
  - Breast cancer [Not Recovered/Not Resolved]

NARRATIVE: CASE EVENT DATE: 20191101
